FAERS Safety Report 6007142-8 (Version None)
Quarter: 2008Q4

REPORT INFORMATION
  Report Type: 
  Country: None (occurrence: None)
  Receive Date: 20081217
  Receipt Date: 20080128
  Transmission Date: 20090506
  Serious: No
  Sender: FDA-Public Use
  Company Number: US-ASTRAZENECA-2008UW01935

PATIENT
  Age: 71 Year
  Sex: Male
  Weight: 81.6 kg

DRUGS (4)
  1. CRESTOR [Suspect]
     Indication: BLOOD CHOLESTEROL INCREASED
  2. LEVOXYL [Concomitant]
  3. LISINOPRIL [Concomitant]
  4. VITAMINS [Concomitant]

REACTIONS (1)
  - BLOOD PRESSURE INCREASED [None]
